FAERS Safety Report 4629138-0 (Version None)
Quarter: 2005Q2

REPORT INFORMATION
  Report Type: 
  Country: None (occurrence: None)
  Receive Date: 20050407
  Receipt Date: 20050330
  Transmission Date: 20051028
  Serious: Yes (Hospitalization)
  Sender: FDA-Public Use
  Company Number: 200512892GDDC

PATIENT
  Sex: Female

DRUGS (5)
  1. LANTUS [Suspect]
  2. OPTIPEN (INSULIN PUMP) [Suspect]
  3. PETHIDINE [Concomitant]
     Indication: PAIN
  4. CYCLIZINE [Concomitant]
     Indication: VOMITING
  5. UNKNOWN DRUG [Concomitant]

REACTIONS (5)
  - AUTONOMIC NEUROPATHY [None]
  - CONDITION AGGRAVATED [None]
  - GASTROINTESTINAL DISORDER [None]
  - NEUROPATHY [None]
  - WEIGHT DECREASED [None]
